FAERS Safety Report 17227478 (Version 1)
Quarter: 2020Q1

REPORT INFORMATION
  Report Type: Spontaneous
  Country: FR (occurrence: FR)
  Receive Date: 20200103
  Receipt Date: 20200103
  Transmission Date: 20200409
  Serious: Yes (Hospitalization)
  Sender: FDA-Public Use
  Company Number: FR-ROCHE-2508460

PATIENT
  Age: 64 Year
  Sex: Male
  Weight: 80 kg

DRUGS (11)
  1. GARDENAL [PHENOBARBITAL] [Suspect]
     Active Substance: PHENOBARBITAL
     Indication: SEIZURE
     Route: 042
     Dates: start: 20191129, end: 20191129
  2. SPECIAFOLDINE [Concomitant]
     Active Substance: FOLIC ACID
  3. CLONAZEPAM. [Suspect]
     Active Substance: CLONAZEPAM
     Indication: SEIZURE
     Route: 030
     Dates: start: 20191129, end: 20191129
  4. ZEBINIX [Concomitant]
     Active Substance: ESLICARBAZEPINE ACETATE
  5. GLICLAZIDE [Concomitant]
     Active Substance: GLICLAZIDE
  6. PROPRANOLOL [Concomitant]
     Active Substance: PROPRANOLOL HYDROCHLORIDE
  7. URBANYL [Concomitant]
     Active Substance: CLOBAZAM
  8. PANTOPRAZOLE [Concomitant]
     Active Substance: PANTOPRAZOLE
  9. EPITOMAX [Concomitant]
     Active Substance: TOPIRAMATE
  10. JANUVIA [Concomitant]
     Active Substance: SITAGLIPTIN PHOSPHATE
  11. ROSUVASTATINE [ROSUVASTATIN] [Concomitant]
     Active Substance: ROSUVASTATIN

REACTIONS (2)
  - Coma [Recovered/Resolved]
  - Dysphagia [Recovered/Resolved]

NARRATIVE: CASE EVENT DATE: 20191129
